FAERS Safety Report 7113370-0 (Version None)
Quarter: 2010Q4

REPORT INFORMATION
  Report Type: 
  Country: None (occurrence: None)
  Receive Date: 20101119
  Receipt Date: 20101115
  Transmission Date: 20110411
  Serious: Yes (Disabling, Other)
  Sender: FDA-Public Use
  Company Number: FR-PFIZER INC-2010148739

PATIENT
  Age: 27 Year
  Sex: Female

DRUGS (1)
  1. CYTOTEC [Suspect]
     Indication: POSTPARTUM DISORDER
     Dosage: 0.25 DF
     Route: 067

REACTIONS (2)
  - OFF LABEL USE [None]
  - UTERINE RUPTURE [None]
